FAERS Safety Report 20799448 (Version 1)
Quarter: 2022Q2

REPORT INFORMATION
  Report Type: Spontaneous
  Country: US (occurrence: US)
  Receive Date: 20220508
  Receipt Date: 20220508
  Transmission Date: 20220721
  Serious: No
  Sender: FDA-Public Use
  Company Number: US-Blueprint Medicines Corporation-SP-US-2022-001273

PATIENT
  Age: 73 Year
  Sex: Female

DRUGS (2)
  1. AYVAKIT [Suspect]
     Active Substance: AVAPRITINIB
     Indication: Haematopoietic neoplasm
     Route: 065
     Dates: start: 20211028
  2. AYVAKIT [Suspect]
     Active Substance: AVAPRITINIB
     Indication: Systemic mastocytosis

REACTIONS (3)
  - Dyspepsia [Not Recovered/Not Resolved]
  - Eye swelling [Not Recovered/Not Resolved]
  - Periorbital swelling [Not Recovered/Not Resolved]
